FAERS Safety Report 4375119-4 (Version None)
Quarter: 2004Q2

REPORT INFORMATION
  Report Type: 
  Country: None (occurrence: None)
  Receive Date: 20040609
  Receipt Date: 20040518
  Transmission Date: 20050107
  Serious: Yes (Life-Threatening)
  Sender: FDA-Public Use
  Company Number: US-MERCK-0405USA01344

PATIENT
  Age: 95 Year
  Sex: Female

DRUGS (4)
  1. TRUSOPT [Suspect]
     Indication: OPEN ANGLE GLAUCOMA
     Route: 047
     Dates: start: 19951030, end: 19960701
  2. TRUSOPT [Suspect]
     Route: 047
     Dates: start: 19960701, end: 20000417
  3. VIOXX [Concomitant]
     Route: 048
  4. TIMOPTIC [Suspect]
     Indication: OPEN ANGLE GLAUCOMA
     Route: 047
     Dates: start: 19930301, end: 19960701

REACTIONS (4)
  - APLASTIC ANAEMIA [None]
  - DISEASE PROGRESSION [None]
  - EYE ALLERGY [None]
  - OPEN ANGLE GLAUCOMA [None]
